FAERS Safety Report 7591811-2 (Version None)
Quarter: 2011Q2

REPORT INFORMATION
  Report Type: 
  Country: None (occurrence: None)
  Receive Date: 20110603
  Receipt Date: 20110301
  Transmission Date: 20111010
  Serious: No
  Sender: FDA-Public Use
  Company Number: 2011SP009560

PATIENT
  Age: 20 Year
  Sex: Male

DRUGS (6)
  1. BENZTROPINE MESYLATE [Concomitant]
  2. LAMIICTAL [Concomitant]
  3. CLONIDINE [Concomitant]
  4. SAPHRIS [Suspect]
     Indication: BIPOLAR DISORDER
     Dosage: 5 MG;QPM;SL
     Route: 060
     Dates: start: 20110226, end: 20110228
  5. LITHIUM [Concomitant]
  6. GENOTROPIN [Concomitant]

REACTIONS (4)
  - INAPPROPRIATE SCHEDULE OF DRUG ADMINISTRATION [None]
  - UNDERDOSE [None]
  - URTICARIA [None]
  - OEDEMA PERIPHERAL [None]
